FAERS Safety Report 9604157 (Version 1)
Quarter: 2013Q4

REPORT INFORMATION
  Report Type: Spontaneous
  Country: DE (occurrence: DE)
  Receive Date: 20131008
  Receipt Date: 20131008
  Transmission Date: 20140711
  Serious: Yes (Hospitalization, Other)
  Sender: FDA-Public Use
  Company Number: DE-CELGENEUS-062-50794-13093808

PATIENT
  Age: 70 Year
  Sex: Male

DRUGS (2)
  1. VIDAZA [Suspect]
     Indication: MYELODYSPLASTIC SYNDROME
     Route: 065
     Dates: start: 20130521
  2. VIDAZA [Suspect]
     Route: 065
     Dates: start: 20130902

REACTIONS (2)
  - Gouty arthritis [Recovered/Resolved]
  - Tumour lysis syndrome [Recovered/Resolved]
